FAERS Safety Report 25358308 (Version 1)
Quarter: 2025Q2

REPORT INFORMATION
  Report Type: Spontaneous
  Country: US (occurrence: US)
  Receive Date: 20250526
  Receipt Date: 20250526
  Transmission Date: 20250716
  Serious: No
  Sender: ROCHE
  Company Number: US-ROCHE-10000287549

PATIENT
  Age: 64 Year
  Sex: Female
  Weight: 72.57 kg

DRUGS (14)
  1. CELLCEPT [Suspect]
     Active Substance: MYCOPHENOLATE MOFETIL
     Indication: Transplant
     Dosage: BID
     Route: 065
  2. ORENITRAM [Suspect]
     Active Substance: TREPROSTINIL
     Indication: Pulmonary arterial hypertension
     Route: 048
     Dates: start: 20170425
  3. OMEGA-3 ACIDS [Concomitant]
     Active Substance: OMEGA-3 FATTY ACIDS
  4. FUROSEMIDE [Concomitant]
     Active Substance: FUROSEMIDE
  5. DILTIAZEM [Concomitant]
     Active Substance: DILTIAZEM
  6. FAMOTIDINE [Concomitant]
     Active Substance: FAMOTIDINE
  7. PREDNISONE [Concomitant]
     Active Substance: PREDNISONE
  8. ADVAIR HFA [Concomitant]
     Active Substance: FLUTICASONE PROPIONATE\SALMETEROL XINAFOATE
  9. ALBUTEROL SULFATE [Concomitant]
     Active Substance: ALBUTEROL SULFATE
  10. KEPPRA [Concomitant]
     Active Substance: LEVETIRACETAM
  11. OPSUMIT [Concomitant]
     Active Substance: MACITENTAN
  12. CALCIUM [Concomitant]
     Active Substance: CALCIUM
  13. OXYGEN [Concomitant]
     Active Substance: OXYGEN
  14. TADALAFIL [Concomitant]
     Active Substance: TADALAFIL

REACTIONS (1)
  - Abdominal pain upper [Recovered/Resolved]
